FAERS Safety Report 23453007 (Version 2)
Quarter: 2024Q1

REPORT INFORMATION
  Report Type: Spontaneous
  Country: FR (occurrence: FR)
  Receive Date: 20240129
  Receipt Date: 20240215
  Transmission Date: 20240409
  Serious: Yes (Other)
  Sender: FDA-Public Use
  Company Number: FR-Nova Laboratories Limited-2152229

PATIENT
  Age: 19 Year
  Sex: Male

DRUGS (10)
  1. PURIXAN [Suspect]
     Active Substance: MERCAPTOPURINE
  2. METHOTREXATE [Suspect]
     Active Substance: METHOTREXATE
  3. THYMOCYTE IMMUNE GLOBULIN NOS [Suspect]
     Active Substance: THYMOCYTE IMMUNE GLOBULIN NOS
  4. CYCLOSPORINE [Suspect]
     Active Substance: CYCLOSPORINE
  5. URSODIOL [Suspect]
     Active Substance: URSODIOL
  6. VINCRISTINE [Suspect]
     Active Substance: VINCRISTINE
  7. CYCLOPHOSPHAMIDE [Suspect]
     Active Substance: CYCLOPHOSPHAMIDE
  8. DARATUMUMAB [Suspect]
     Active Substance: DARATUMUMAB
     Route: 058
  9. PEGASPARGASE [Suspect]
     Active Substance: PEGASPARGASE
  10. METHOTREXATE [Suspect]
     Active Substance: METHOTREXATE

REACTIONS (6)
  - Cholestasis [Recovered/Resolved]
  - Off label use [Unknown]
  - Liver function test abnormal [Unknown]
  - Hepatic cytolysis [Recovered/Resolved]
  - Thrombocytopenia [Recovered/Resolved]
  - Venoocclusive disease [Recovered/Resolved]
